FAERS Safety Report 20428891 (Version 2)
Quarter: 2022Q2

REPORT INFORMATION
  Report Type: Spontaneous
  Country: US (occurrence: US)
  Receive Date: 20220204
  Receipt Date: 20220510
  Transmission Date: 20220721
  Serious: No
  Sender: FDA-Public Use
  Company Number: US-ALLERGAN-2202487US

PATIENT

DRUGS (1)
  1. VUITY [Suspect]
     Active Substance: PILOCARPINE HYDROCHLORIDE
     Indication: Presbyopia
     Dosage: UNK
     Dates: start: 20220104

REACTIONS (5)
  - Eye movement disorder [Unknown]
  - Pupillary disorder [Unknown]
  - Drug ineffective [Unknown]
  - Visual impairment [Unknown]
  - Vision blurred [Unknown]
